FAERS Safety Report 8236394-9 (Version None)
Quarter: 2012Q1

REPORT INFORMATION
  Report Type: 
  Country: None (occurrence: None)
  Receive Date: 20120327
  Receipt Date: 20120323
  Transmission Date: 20120608
  Serious: No
  Sender: FDA-Public Use
  Company Number: US-PFIZER INC-2012053063

PATIENT
  Sex: Female

DRUGS (2)
  1. COENZYME Q10 [Concomitant]
     Dosage: UNK
  2. LIPITOR [Suspect]
     Dosage: UNK

REACTIONS (2)
  - ARTHROPATHY [None]
  - MUSCULOSKELETAL DISCOMFORT [None]
